FAERS Safety Report 9258804 (Version 2)
Quarter: 2013Q3

REPORT INFORMATION
  Report Type: Report from Study
  Country: ES (occurrence: ES)
  Receive Date: 20130426
  Receipt Date: 20130708
  Transmission Date: 20140515
  Serious: Yes (Other)
  Sender: FDA-Public Use
  Company Number: ES-CELGENEUS-144-21880-13042790

PATIENT
  Age: 76 Year
  Sex: Male
  Weight: 64 kg

DRUGS (8)
  1. REVLIMID [Suspect]
     Indication: PLASMA CELL MYELOMA
     Dosage: 7.5 MILLIGRAM
     Route: 048
     Dates: start: 20090323
  2. REVLIMID [Suspect]
     Dosage: 15 MILLIGRAM
     Route: 048
     Dates: start: 20090323, end: 20090412
  3. REVLIMID [Suspect]
     Route: 048
     Dates: start: 20090329
  4. REVLIMID [Suspect]
     Route: 048
     Dates: start: 20120813
  5. DEXAMETHASONE [Suspect]
     Indication: PLASMA CELL MYELOMA
     Route: 048
     Dates: start: 20090323, end: 20090420
  6. DEXAMETHASONE [Suspect]
     Route: 048
     Dates: start: 20100423, end: 20100520
  7. ASPIRINE [Concomitant]
     Indication: THROMBOSIS PROPHYLAXIS
     Route: 065
  8. OMEPRAZOLE [Concomitant]
     Indication: PRODUCT USED FOR UNKNOWN INDICATION
     Dosage: 20 MILLIGRAM
     Route: 065

REACTIONS (1)
  - Basal cell carcinoma [Recovered/Resolved]
